FAERS Safety Report 21758733 (Version 1)
Quarter: 2022Q4

REPORT INFORMATION
  Report Type: Spontaneous
  Country: BT (occurrence: BT)
  Receive Date: 20221221
  Receipt Date: 20221221
  Transmission Date: 20230113
  Serious: Yes (Other)
  Sender: FDA-Public Use
  Company Number: BT-STERISCIENCE B.V.-2022-ST-000324

PATIENT
  Sex: Male
  Weight: 1.6 kg

DRUGS (3)
  1. LABETALOL [Suspect]
     Active Substance: LABETALOL\LABETALOL HYDROCHLORIDE
     Indication: Product used for unknown indication
     Dosage: UNK
     Route: 064
  2. DEXAMETHASONE [Suspect]
     Active Substance: DEXAMETHASONE
     Indication: Product used for unknown indication
     Dosage: PATIENT^S MOTHER RECEIVED 6MG 4 DOSES 12 HOURLY
     Route: 064
  3. MAGNESIUM SULFATE [Suspect]
     Active Substance: MAGNESIUM SULFATE
     Indication: Product used for unknown indication
     Dosage: PATIENT^S MOTHER RECEIVED 4G OVER 20 MIN (LOADING DOSE) FOLLOWED BY 1 G/HOUR (MAINTENANCE DOSE)
     Route: 064

REACTIONS (4)
  - Low birth weight baby [Unknown]
  - Retinopathy of prematurity [Unknown]
  - Premature baby [Unknown]
  - Foetal exposure during pregnancy [Unknown]
